FAERS Safety Report 8570200 (Version 4)
Quarter: 2013Q3

REPORT INFORMATION
  Report Type: Spontaneous
  Country: TR (occurrence: TR)
  Receive Date: 20120521
  Receipt Date: 20130827
  Transmission Date: 20140515
  Serious: Yes (Other)
  Sender: FDA-Public Use
  Company Number: TR-AMGEN-TURSP2012030702

PATIENT
  Age: 65 Year
  Sex: Male

DRUGS (4)
  1. ENBREL [Suspect]
     Indication: ANKYLOSING SPONDYLITIS
     Dosage: UNK MG, UNK
     Route: 065
     Dates: start: 201002, end: 201204
  2. ENBREL [Suspect]
     Dosage: UNK
     Route: 065
     Dates: start: 201206, end: 201211
  3. ENBREL [Suspect]
     Dosage: 50 MG, QWK
     Route: 058
     Dates: start: 20121115, end: 201307
  4. ENBREL [Suspect]
     Dosage: 50 MG, QWK
     Route: 058
     Dates: start: 201202, end: 201206

REACTIONS (8)
  - Drug dependence [Not Recovered/Not Resolved]
  - Road traffic accident [Recovered/Resolved]
  - Local swelling [Recovered/Resolved]
  - Contusion [Recovered/Resolved]
  - Skin disorder [Recovered/Resolved]
  - Wound [Recovered/Resolved]
  - Neck pain [Not Recovered/Not Resolved]
  - Injection site pain [Not Recovered/Not Resolved]
